FAERS Safety Report 7766853-4 (Version None)
Quarter: 2011Q3

REPORT INFORMATION
  Report Type: 
  Country: None (occurrence: None)
  Receive Date: 20110922
  Receipt Date: 20110919
  Transmission Date: 20111222
  Serious: No
  Sender: FDA-Public Use
  Company Number: US-PFIZER INC-2011221925

PATIENT
  Sex: Female
  Weight: 82.54 kg

DRUGS (7)
  1. INSULIN [Concomitant]
     Dosage: UNK
  2. LISINOPRIL [Concomitant]
     Dosage: UNK
  3. CARVEDILOL [Concomitant]
     Dosage: UNK
  4. RITALIN [Concomitant]
     Indication: SLEEP APNOEA SYNDROME
     Dosage: UNK
  5. LEVOTHYROXINE [Concomitant]
     Dosage: UNK
  6. PRISTIQ [Suspect]
     Indication: DEPRESSION
     Dosage: 25 MG, 1X/DAY
     Route: 048
     Dates: start: 20110915, end: 20110916
  7. PLAVIX [Concomitant]
     Dosage: UNK

REACTIONS (4)
  - FEELING ABNORMAL [None]
  - LETHARGY [None]
  - APATHY [None]
  - FATIGUE [None]
